FAERS Safety Report 12142180 (Version 1)
Quarter: 2016Q1

REPORT INFORMATION
  Report Type: Spontaneous
  Country: CA (occurrence: CA)
  Receive Date: 20160303
  Receipt Date: 20160303
  Transmission Date: 20160526
  Serious: Yes (Life-Threatening)
  Sender: FDA-Public Use
  Company Number: CA-TEVA-639555ACC

PATIENT
  Age: 39 Year
  Sex: Female

DRUGS (2)
  1. TOPIRAMATE. [Suspect]
     Active Substance: TOPIRAMATE
     Indication: MIGRAINE PROPHYLAXIS
     Dosage: 62 MILLIGRAM DAILY;
     Route: 048
  2. RELPAX [Concomitant]
     Active Substance: ELETRIPTAN HYDROBROMIDE

REACTIONS (5)
  - Aggression [Recovered/Resolved]
  - Crying [Recovered/Resolved]
  - Nightmare [Recovered/Resolved]
  - Intentional self-injury [Recovered/Resolved]
  - Affective disorder [Recovered/Resolved]
